FAERS Safety Report 11456741 (Version 2)
Quarter: 2015Q3

REPORT INFORMATION
  Report Type: Spontaneous
  Country: US (occurrence: US)
  Receive Date: 20150903
  Receipt Date: 20150908
  Transmission Date: 20151125
  Serious: Yes (Hospitalization)
  Sender: FDA-Public Use
  Company Number: US-BAUSCH-BL-2015-020724

PATIENT
  Age: 52 Year
  Sex: Female
  Weight: 59.02 kg

DRUGS (1)
  1. XENAZINE [Suspect]
     Active Substance: TETRABENAZINE
     Indication: HUNTINGTON^S DISEASE
     Dosage: 2 + 1/2 TABLETS THREE TIMES DAILY
     Route: 048
     Dates: start: 20130111, end: 20150828

REACTIONS (2)
  - Prescribed overdose [Unknown]
  - Hospitalisation [Unknown]

NARRATIVE: CASE EVENT DATE: 20130111
